FAERS Safety Report 19679847 (Version 4)
Quarter: 2022Q4

REPORT INFORMATION
  Report Type: Report from Study
  Country: US (occurrence: US)
  Receive Date: 20210809
  Receipt Date: 20221007
  Transmission Date: 20230113
  Serious: Yes (Other)
  Sender: FDA-Public Use
  Company Number: US-ABBVIE-21K-163-4023666-00

PATIENT
  Sex: Male

DRUGS (17)
  1. VENCLEXTA [Suspect]
     Active Substance: VENETOCLAX
     Indication: Primary amyloidosis
     Dosage: TAKE 1 TABLET BY MOUTH DAILY
     Route: 048
  2. VENCLEXTA [Suspect]
     Active Substance: VENETOCLAX
     Indication: Primary amyloidosis
     Dosage: TAKE 4 TABLETS BY MOUTH DAILY
     Route: 048
  3. VENCLEXTA [Suspect]
     Active Substance: VENETOCLAX
     Indication: Primary amyloidosis
     Route: 048
  4. ACYCLOVIR [Concomitant]
     Active Substance: ACYCLOVIR
     Indication: Product used for unknown indication
     Route: 048
  5. ASPIRIN [Concomitant]
     Active Substance: ASPIRIN
     Indication: Product used for unknown indication
     Route: 048
  6. DEXAMETHASONE [Concomitant]
     Active Substance: DEXAMETHASONE
     Indication: Product used for unknown indication
     Dosage: TAKE 12 MG 3(3 TABETS) ORALY ON DAY 1 OF CHEMO CYCLE
     Route: 048
  7. NEXIUM [Concomitant]
     Active Substance: ESOMEPRAZOLE MAGNESIUM
     Indication: Product used for unknown indication
     Dosage: EVERY MORNING
     Route: 048
  8. FENTANYL [Concomitant]
     Active Substance: FENTANYL
     Indication: Product used for unknown indication
     Dosage: 1 PATCH APPLY TO SKIN EVERY 72 HRS APPLY WITH 12 MCG/ HR FOR TOTAL DOSE 37 MCG/HR
  9. HYDROMORPHONE [Concomitant]
     Active Substance: HYDROMORPHONE
     Indication: Pain
     Route: 048
  10. LACTULOSE [Concomitant]
     Active Substance: LACTULOSE
     Indication: Constipation
     Dosage: TAKE IF NO BOWEL MOVEMENT FOR MORE THAN 48 HRS
     Route: 048
  11. REVLIMID [Concomitant]
     Active Substance: LENALIDOMIDE
     Indication: Product used for unknown indication
     Dosage: FOR 14 DAYS, ONGOING NO
     Route: 048
  12. LEVOTHYROXINE [Concomitant]
     Active Substance: LEVOTHYROXINE
     Indication: Product used for unknown indication
     Dosage: EVERY MORNING
     Route: 048
  13. VITAMINS [Concomitant]
     Active Substance: VITAMINS
     Indication: Product used for unknown indication
     Dosage: EVERY MORNING
     Route: 048
  14. PROMETHAZINE [Concomitant]
     Active Substance: PROMETHAZINE HYDROCHLORIDE
     Indication: Nausea
     Dosage: AS NEEDED
     Route: 048
  15. FLOMAX [Concomitant]
     Active Substance: TAMSULOSIN HYDROCHLORIDE
     Indication: Product used for unknown indication
     Dosage: EVERY MORNING
     Route: 048
  16. TRAZODONE [Concomitant]
     Active Substance: TRAZODONE HYDROCHLORIDE
     Indication: Product used for unknown indication
     Dosage: EVERY NIGHT AT BEDTIME
     Route: 048
  17. VARENICLINE [Concomitant]
     Active Substance: VARENICLINE
     Indication: Product used for unknown indication
     Dosage: 0.5 MG ONCE DAILY DAY 4-7 , 0.5 MG TWICE DAILY THEN CONTINUE WITH 1 MG TWICE DAILY
     Route: 048

REACTIONS (5)
  - Pleural effusion [Unknown]
  - Dialysis [Unknown]
  - Off label use [Unknown]
  - Amyloidosis [Unknown]
  - Disease progression [Unknown]
